FAERS Safety Report 6038508-8 (Version None)
Quarter: 2009Q1

REPORT INFORMATION
  Report Type: 
  Country: None (occurrence: None)
  Receive Date: 20090115
  Receipt Date: 20080619
  Transmission Date: 20090719
  Serious: Yes (Hospitalization)
  Sender: FDA-Public Use
  Company Number: US-KINGPHARMUSA00001-K200800712

PATIENT
  Sex: Female
  Weight: 63.492 kg

DRUGS (1)
  1. EPIPEN [Suspect]
     Dosage: .3 MG, SINGLE
     Dates: start: 20080618, end: 20080618

REACTIONS (3)
  - ACCIDENTAL EXPOSURE [None]
  - HYPOAESTHESIA [None]
  - INJECTION SITE PALLOR [None]
